FAERS Safety Report 6383038-7 (Version None)
Quarter: 2009Q3

REPORT INFORMATION
  Report Type: 
  Country: None (occurrence: None)
  Receive Date: 20090930
  Receipt Date: 20090924
  Transmission Date: 20100115
  Serious: Yes (Hospitalization)
  Sender: FDA-Public Use
  Company Number: JP-ABBOTT-09P-087-0599736-00

PATIENT
  Age: 76 Year
  Sex: Male

DRUGS (5)
  1. LEUPLIN SR FOR INJECTION 11.25 MG [Suspect]
     Indication: PROSTATE CANCER STAGE II
     Route: 058
     Dates: start: 20061228, end: 20080228
  2. LEUPLIN SR FOR INJECTION 11.25 MG [Suspect]
     Route: 058
     Dates: start: 20080804
  3. ACTOS [Concomitant]
     Indication: DIABETES MELLITUS
     Route: 048
  4. MEVALOTIN [Concomitant]
     Indication: HYPERLIPIDAEMIA
     Route: 048
  5. ALESION [Concomitant]
     Indication: RHINITIS ALLERGIC
     Route: 048
     Dates: start: 20040122

REACTIONS (2)
  - FALL [None]
  - GASTRIC ULCER [None]
